FAERS Safety Report 24125390 (Version 1)
Quarter: 2024Q3

REPORT INFORMATION
  Report Type: Report from Study
  Country: CO (occurrence: CO)
  Receive Date: 20240723
  Receipt Date: 20240723
  Transmission Date: 20241017
  Serious: Yes (Death, Other)
  Sender: ABBVIE
  Company Number: CO-ABBVIE-5846092

PATIENT
  Age: 77 Year
  Sex: Male

DRUGS (1)
  1. VENCLEXTA [Suspect]
     Active Substance: VENETOCLAX
     Indication: Acute myeloid leukaemia
     Route: 048
     Dates: start: 20240525

REACTIONS (3)
  - Death [Fatal]
  - Acute myeloid leukaemia [Unknown]
  - Respiratory symptom [Unknown]

NARRATIVE: CASE EVENT DATE: 20240716
